FAERS Safety Report 10077592 (Version 1)
Quarter: 2014Q2

REPORT INFORMATION
  Report Type: Spontaneous
  Country: US (occurrence: US)
  Receive Date: 20140414
  Receipt Date: 20140414
  Transmission Date: 20141212
  Serious: No
  Sender: FDA-Public Use
  Company Number: US-BANPHARM-20131932

PATIENT
  Age: 66 Year
  Sex: Female
  Weight: 70.31 kg

DRUGS (5)
  1. ALEVE LIQUID GELS 220 MG [Suspect]
     Indication: ARTHRITIS
     Dosage: 1 DF, BID,
     Route: 048
     Dates: start: 201311, end: 20131202
  2. ALEVE TABLETS [Suspect]
     Indication: ARTHRITIS
     Dosage: 1 DF, BID,
     Dates: start: 201311, end: 20131202
  3. GLUCOSAMINE [Concomitant]
  4. HIGH BLOOD PRESSURE PILL [Concomitant]
  5. ACID INDIGESTION PILL [Concomitant]

REACTIONS (1)
  - Alopecia [Not Recovered/Not Resolved]
